FAERS Safety Report 7666949-1 (Version None)
Quarter: 2011Q3

REPORT INFORMATION
  Report Type: 
  Country: None (occurrence: None)
  Receive Date: 20110806
  Receipt Date: 20110425
  Transmission Date: 20111222
  Serious: No
  Sender: FDA-Public Use
  Company Number: US-ABBOTT-11P-163-0721581-00

PATIENT
  Sex: Male
  Weight: 81.72 kg

DRUGS (4)
  1. CELEBREX [Concomitant]
     Indication: PRODUCT USED FOR UNKNOWN INDICATION
  2. LEVOTHYROXINE SODIUM [Concomitant]
     Indication: PRODUCT USED FOR UNKNOWN INDICATION
  3. NIASPAN [Suspect]
     Indication: LOW DENSITY LIPOPROTEIN INCREASED
     Dosage: AT BEDTIME, 1 IN 1 DAY
     Dates: start: 20090101, end: 20101101
  4. NIASPAN [Suspect]
     Indication: BLOOD TRIGLYCERIDES ABNORMAL
     Dosage: AT BEDTIME, 1 IN 1 DAY
     Dates: start: 20110301

REACTIONS (4)
  - PRURITUS [None]
  - FEELING HOT [None]
  - FLUSHING [None]
  - ERYTHEMA [None]
